FAERS Safety Report 16699774 (Version 1)
Quarter: 2019Q3

REPORT INFORMATION
  Report Type: Spontaneous
  Country: US (occurrence: US)
  Receive Date: 20190813
  Receipt Date: 20190813
  Transmission Date: 20191004
  Serious: No
  Sender: FDA-Public Use
  Company Number: PHEH2019US033144

PATIENT
  Weight: 150 kg

DRUGS (1)
  1. ARGATROBAN. [Suspect]
     Active Substance: ARGATROBAN
     Indication: PRODUCT USED FOR UNKNOWN INDICATION
     Dosage: 734 ML, UNK
     Route: 065

REACTIONS (2)
  - Device occlusion [Unknown]
  - Injury [Unknown]

NARRATIVE: CASE EVENT DATE: 20190728
